FAERS Safety Report 5971752-4 (Version None)
Quarter: 2008Q4

REPORT INFORMATION
  Report Type: 
  Country: None (occurrence: None)
  Receive Date: 20081125
  Receipt Date: 20080924
  Transmission Date: 20090506
  Serious: Yes (Other)
  Sender: FDA-Public Use
  Company Number: 43037

PATIENT
  Age: 56 Year
  Sex: Female

DRUGS (1)
  1. DEEP HEATING RUB 8% MENTHOL, 30% METHYL SALICYLATE [Suspect]
     Indication: ANALGESIA
     Dosage: TOPICAL
     Route: 061
     Dates: start: 20080726

REACTIONS (1)
  - DERMATITIS CONTACT [None]
